FAERS Safety Report 8226881-1 (Version None)
Quarter: 2012Q1

REPORT INFORMATION
  Report Type: 
  Country: None (occurrence: None)
  Receive Date: 20120322
  Receipt Date: 20120315
  Transmission Date: 20120608
  Serious: Yes (Hospitalization)
  Sender: FDA-Public Use
  Company Number: US-BAYER-201011318NA

PATIENT
  Age: 30 Year
  Sex: Female
  Weight: 65.76 kg

DRUGS (11)
  1. SPIRONOLACTONE [Concomitant]
     Indication: POLYCYSTIC OVARIES
  2. ZOCOR [Concomitant]
     Indication: BLOOD CHOLESTEROL INCREASED
  3. GLUCOPHAGE XR [Concomitant]
     Indication: DIABETES MELLITUS
  4. IBUPROFEN [Concomitant]
  5. DARVOCET-N 50 [Concomitant]
  6. ONE-A-DAY [MINERALS NOS,VITAMINS NOS] [Concomitant]
     Dates: start: 20060101
  7. YASMIN [Suspect]
     Indication: POLYCYSTIC OVARIES
     Route: 048
     Dates: start: 20061106, end: 20070121
  8. YASMIN [Suspect]
     Indication: ORAL CONTRACEPTION
  9. SPIRONOLACTONE [Concomitant]
     Indication: HIRSUTISM
     Dates: start: 20100101
  10. HERBAL PREPARATION [Concomitant]
  11. ONE-A-DAY [Concomitant]
     Indication: SUPPLEMENTATION THERAPY
     Dates: start: 20060101

REACTIONS (3)
  - DYSPNOEA [None]
  - CHEST PAIN [None]
  - PULMONARY EMBOLISM [None]
